FAERS Safety Report 10962244 (Version 1)
Quarter: 2015Q1

REPORT INFORMATION
  Report Type: Spontaneous
  Country: US (occurrence: US)
  Receive Date: 20150327
  Receipt Date: 20150327
  Transmission Date: 20150721
  Serious: No
  Sender: FDA-Public Use
  Company Number: US-BAYER-2015-074869

PATIENT
  Age: 72 Year
  Sex: Male
  Weight: 111.11 kg

DRUGS (1)
  1. ALEVE [Suspect]
     Active Substance: NAPROXEN SODIUM
     Indication: BACK PAIN
     Dosage: 2 DF, QD
     Route: 048
     Dates: start: 201402

REACTIONS (2)
  - Nail discolouration [Unknown]
  - Incorrect drug administration duration [None]

NARRATIVE: CASE EVENT DATE: 201402
